FAERS Safety Report 19919711 (Version 1)
Quarter: 2021Q4

REPORT INFORMATION
  Report Type: Spontaneous
  Country: US (occurrence: US)
  Receive Date: 20211005
  Receipt Date: 20211005
  Transmission Date: 20220304
  Serious: No
  Sender: FDA-Public Use
  Company Number: US-PFIZER INC-202101169231

PATIENT
  Age: 68 Year
  Sex: Female
  Weight: 47.63 kg

DRUGS (1)
  1. CHANTIX [Suspect]
     Active Substance: VARENICLINE TARTRATE
     Indication: Smoking cessation therapy
     Dosage: UNK

REACTIONS (3)
  - Anxiety [Unknown]
  - Nightmare [Recovered/Resolved]
  - Recalled product administered [Unknown]
